FAERS Safety Report 7968849-6 (Version None)
Quarter: 2011Q4

REPORT INFORMATION
  Report Type: 
  Country: None (occurrence: None)
  Receive Date: 20111209
  Receipt Date: 20111130
  Transmission Date: 20120403
  Serious: Yes (Hospitalization, Other)
  Sender: FDA-Public Use
  Company Number: PHHY2011ES100697

PATIENT
  Age: 72 Year
  Sex: Female

DRUGS (5)
  1. METOCLOPRAMIDE [Suspect]
  2. DICLOFENAC [Suspect]
  3. METFORMIN HCL [Suspect]
     Indication: TYPE 2 DIABETES MELLITUS
     Dosage: 850 MG, Q12H
  4. FUROSEMIDE [Suspect]
     Indication: TYPE 2 DIABETES MELLITUS
     Dosage: 20 MG, QD
  5. ENALAPRIL MALEATE [Suspect]
     Indication: TYPE 2 DIABETES MELLITUS
     Dosage: 5 MG, QD

REACTIONS (16)
  - ASTHENIA [None]
  - ABDOMINAL PAIN [None]
  - HYPERKALAEMIA [None]
  - ELECTROCARDIOGRAM P WAVE ABNORMAL [None]
  - TACHYPNOEA [None]
  - HYPOTENSION [None]
  - DIARRHOEA [None]
  - ELECTROCARDIOGRAM QRS COMPLEX PROLONGED [None]
  - ELECTROLYTE IMBALANCE [None]
  - PAIN IN EXTREMITY [None]
  - RENAL FAILURE ACUTE [None]
  - HYPOVOLAEMIA [None]
  - LACTIC ACIDOSIS [None]
  - VOMITING [None]
  - OLIGURIA [None]
  - ANURIA [None]
